FAERS Safety Report 6380690-7 (Version None)
Quarter: 2009Q3

REPORT INFORMATION
  Report Type: 
  Country: None (occurrence: None)
  Receive Date: 20090929
  Receipt Date: 20090821
  Transmission Date: 20100115
  Serious: No
  Sender: FDA-Public Use
  Company Number: US-BAYER-200913633BCC

PATIENT
  Age: 76 Year
  Sex: Male
  Weight: 86 kg

DRUGS (6)
  1. ALEVE (CAPLET) [Suspect]
     Indication: TOOTH INFECTION
     Dosage: TOTAL DAILY DOSE: 440 MG  UNIT DOSE: 220 MG
     Route: 048
     Dates: start: 20090812, end: 20090812
  2. ALEVE (CAPLET) [Suspect]
     Dosage: TOTAL DAILY DOSE: 880 MG  UNIT DOSE: 220 MG
     Route: 048
     Dates: start: 20090813, end: 20090817
  3. ALKA SELTZER ORIGINAL [Suspect]
     Indication: DYSPEPSIA
     Route: 065
  4. LOVASTATIN [Concomitant]
     Route: 065
  5. LISINOPRIL [Concomitant]
     Route: 065
  6. CENTRUM SILVER [Concomitant]
     Route: 065

REACTIONS (1)
  - DYSPEPSIA [None]
